APPROVED DRUG PRODUCT: TRANDOLAPRIL
Active Ingredient: TRANDOLAPRIL
Strength: 2MG
Dosage Form/Route: TABLET;ORAL
Application: A078438 | Product #002 | TE Code: AB
Applicant: AUROBINDO PHARMA LTD
Approved: Jun 12, 2007 | RLD: No | RS: No | Type: RX